FAERS Safety Report 6574322-2 (Version None)
Quarter: 2010Q1

REPORT INFORMATION
  Report Type: 
  Country: None (occurrence: None)
  Receive Date: 20100201
  Receipt Date: 20100115
  Transmission Date: 20100710
  Serious: Yes (Life-Threatening)
  Sender: FDA-Public Use
  Company Number: 2010AL000349

PATIENT
  Age: 42 Year
  Sex: Female

DRUGS (3)
  1. LIDOCAINE HYDROCHLORIDE 2% [Suspect]
     Indication: PLANTAR FASCIITIS
     Dosage: 1 ML
     Dates: start: 20051031, end: 20051031
  2. TRIAMCINOLONE ACETONIDE [Suspect]
     Indication: PLANTAR FASCIITIS
     Dosage: 20 MG;
     Dates: start: 20051031, end: 20051031
  3. INHALERS [Concomitant]

REACTIONS (5)
  - LOSS OF CONSCIOUSNESS [None]
  - MASTOCYTOSIS [None]
  - NAUSEA [None]
  - URTICARIA [None]
  - WHITE BLOOD CELL COUNT INCREASED [None]
